FAERS Safety Report 8444875-8 (Version None)
Quarter: 2012Q2

REPORT INFORMATION
  Report Type: 
  Country: None (occurrence: None)
  Receive Date: 20120612
  Receipt Date: 20120612
  Transmission Date: 20120825
  Serious: Yes (Disabling, Other)
  Sender: FDA-Public Use
  Company Number: None

PATIENT
  Age: 36 Year
  Sex: Female
  Weight: 58.9676 kg

DRUGS (2)
  1. MACRODANTIN [Concomitant]
  2. MACRODANTIN [Suspect]
     Indication: INFECTION
     Dosage: 1OR 2 DAYS

REACTIONS (4)
  - DYSKINESIA [None]
  - FOOD ALLERGY [None]
  - BLOOD DISORDER [None]
  - NERVOUS SYSTEM DISORDER [None]
